FAERS Safety Report 18756897 (Version 1)
Quarter: 2021Q1

REPORT INFORMATION
  Report Type: Spontaneous
  Country: CA (occurrence: CA)
  Receive Date: 20210119
  Receipt Date: 20210119
  Transmission Date: 20210419
  Serious: Yes (Life-Threatening, Other)
  Sender: FDA-Public Use
  Company Number: CA-MYLANLABS-2021M1002258

PATIENT
  Age: 66 Year
  Sex: Male

DRUGS (8)
  1. PREVNAR 13 [Suspect]
     Active Substance: PNEUMOCOCCAL 13-VALENT CONJUGATE VACCINE
     Indication: PRODUCT USED FOR UNKNOWN INDICATION
     Dosage: 0.5 MILLILITER
     Route: 030
  2. APIXABAN [Suspect]
     Active Substance: APIXABAN
     Indication: PRODUCT USED FOR UNKNOWN INDICATION
     Dosage: UNK1 DOSAGE FORM
  3. BUDESONIDE. [Suspect]
     Active Substance: BUDESONIDE
     Indication: PRODUCT USED FOR UNKNOWN INDICATION
     Dosage: UNK
  4. EPINEPHRINE. [Suspect]
     Active Substance: EPINEPHRINE
     Indication: ANAPHYLACTIC REACTION
     Dosage: UNK
  5. PREDNISONE. [Suspect]
     Active Substance: PREDNISONE
     Indication: ASTHMA
     Dosage: UNK
  6. OMALIZUMAB. [Suspect]
     Active Substance: OMALIZUMAB
     Indication: PRODUCT USED FOR UNKNOWN INDICATION
     Dosage: UNK
  7. SALBUTAMOL [Suspect]
     Active Substance: ALBUTEROL
     Indication: PRODUCT USED FOR UNKNOWN INDICATION
     Dosage: 100 MICROGRAM
  8. UMECLIDINIUM [Suspect]
     Active Substance: UMECLIDINIUM BROMIDE
     Indication: PRODUCT USED FOR UNKNOWN INDICATION
     Dosage: UNK1 DOSAGE FROM

REACTIONS (1)
  - Drug ineffective [Unknown]
